FAERS Safety Report 5372391-9 (Version None)
Quarter: 2007Q2

REPORT INFORMATION
  Report Type: 
  Country: None (occurrence: None)
  Receive Date: 20070627
  Receipt Date: 20070412
  Transmission Date: 20071010
  Serious: No
  Sender: FDA-Public Use
  Company Number: US-BRISTOL-MYERS SQUIBB COMPANY-13746391

PATIENT
  Age: 71 Year
  Sex: Female
  Weight: 95 kg

DRUGS (11)
  1. SPRYCEL [Suspect]
     Indication: CHRONIC MYELOID LEUKAEMIA
     Route: 048
     Dates: start: 20061027, end: 20061110
  2. NEXIUM [Concomitant]
  3. TOPROL-XL [Concomitant]
  4. MICARDIS [Concomitant]
  5. SYNTHROID [Concomitant]
  6. LORAZEPAM [Concomitant]
  7. ZYRTEC [Concomitant]
  8. ZOLOFT [Concomitant]
  9. HYDROCHLOROTHIAZIDE [Concomitant]
  10. LASIX [Concomitant]
  11. POTASSIUM ACETATE [Concomitant]

REACTIONS (2)
  - DYSPNOEA [None]
  - FATIGUE [None]
